FAERS Safety Report 8096099-4 (Version None)
Quarter: 2012Q1

REPORT INFORMATION
  Report Type: 
  Country: None (occurrence: None)
  Receive Date: 20120131
  Receipt Date: 20120125
  Transmission Date: 20120608
  Serious: Yes (Death, Hospitalization)
  Sender: FDA-Public Use
  Company Number: US-GLAXOSMITHKLINE-A0901280A

PATIENT
  Age: 70 Year
  Sex: Female
  Weight: 108.6 kg

DRUGS (9)
  1. LIPITOR [Concomitant]
  2. PRILOSEC [Concomitant]
  3. SYNTHROID [Concomitant]
  4. VIOXX [Concomitant]
  5. AVANDIA [Suspect]
     Indication: DIABETES MELLITUS
     Dosage: 4MG TWICE PER DAY
     Route: 048
     Dates: start: 20000101, end: 20060101
  6. TOPROL-XL [Concomitant]
  7. ALLEGRA [Concomitant]
  8. GLUCOTROL [Concomitant]
  9. ALTACE [Concomitant]

REACTIONS (2)
  - CARDIAC FAILURE CONGESTIVE [None]
  - DEATH [None]
